FAERS Safety Report 7972666-0 (Version None)
Quarter: 2011Q4

REPORT INFORMATION
  Report Type: 
  Country: None (occurrence: None)
  Receive Date: 20111213
  Receipt Date: 20111207
  Transmission Date: 20120403
  Serious: Yes (Other)
  Sender: FDA-Public Use
  Company Number: AU-AMGEN-AUSSP2011065609

PATIENT

DRUGS (2)
  1. SULFASALAZINE [Suspect]
     Indication: ARTHRITIS REACTIVE
     Dosage: UNK
  2. ENBREL [Suspect]
     Indication: ARTHRITIS REACTIVE
     Dosage: UNK

REACTIONS (1)
  - INTESTINAL PERFORATION [None]
